FAERS Safety Report 6917106-5 (Version None)
Quarter: 2010Q3

REPORT INFORMATION
  Report Type: 
  Country: None (occurrence: None)
  Receive Date: 20100810
  Receipt Date: 20100803
  Transmission Date: 20110219
  Serious: Yes (Hospitalization)
  Sender: FDA-Public Use
  Company Number: B0668246A

PATIENT
  Sex: Male

DRUGS (7)
  1. REQUIP [Suspect]
     Indication: PARKINSON'S DISEASE
     Route: 048
     Dates: start: 20090301
  2. DEROXAT [Suspect]
     Indication: DEPRESSION
     Dosage: 20MG PER DAY
     Route: 048
     Dates: start: 20100210
  3. STALEVO 100 [Suspect]
     Indication: PARKINSON'S DISEASE
     Dosage: 1UNIT FOUR TIMES PER DAY
     Route: 048
     Dates: start: 20100303
  4. MODOPAR [Suspect]
     Indication: PARKINSON'S DISEASE
     Dosage: 1UNIT TWICE PER DAY
     Route: 048
     Dates: start: 20090301
  5. KARDEGIC [Concomitant]
     Route: 065
  6. ZOLPIDEM [Concomitant]
     Route: 065
  7. BROMAZEPAM [Concomitant]
     Route: 065

REACTIONS (4)
  - AGITATION [None]
  - DYSKINESIA [None]
  - NERVOUSNESS [None]
  - NIGHTMARE [None]
